FAERS Safety Report 21299051 (Version 4)
Quarter: 2023Q4

REPORT INFORMATION
  Report Type: Report from Study
  Country: MX (occurrence: MX)
  Receive Date: 20220906
  Receipt Date: 20231223
  Transmission Date: 20240109
  Serious: Yes (Hospitalization)
  Sender: FDA-Public Use
  Company Number: MX-NOVARTISPH-NVSC2021MX119551

PATIENT
  Age: 67 Year
  Sex: Male
  Weight: 94 kg

DRUGS (2)
  1. TASIGNA [Suspect]
     Active Substance: NILOTINIB
     Indication: Chronic myeloid leukaemia
     Dosage: 800 MG, QD
     Route: 048
  2. TASIGNA [Suspect]
     Active Substance: NILOTINIB
     Dosage: UNK
     Route: 048

REACTIONS (9)
  - Arterial insufficiency [Unknown]
  - Limb injury [Recovering/Resolving]
  - Pain in extremity [Unknown]
  - Limb discomfort [Unknown]
  - Nail disorder [Recovering/Resolving]
  - Dysstasia [Unknown]
  - Discomfort [Unknown]
  - Weight decreased [Unknown]
  - Dry skin [Not Recovered/Not Resolved]

NARRATIVE: CASE EVENT DATE: 20210501
